FAERS Safety Report 7770970-2 (Version None)
Quarter: 2011Q3

REPORT INFORMATION
  Report Type: 
  Country: None (occurrence: None)
  Receive Date: 20110922
  Receipt Date: 20101006
  Transmission Date: 20111222
  Serious: No
  Sender: FDA-Public Use
  Company Number: US-ASTRAZENECA-2010SE35415

PATIENT
  Sex: Female

DRUGS (10)
  1. VYCODAN [Concomitant]
  2. SEROQUEL [Suspect]
     Indication: BIPOLAR DISORDER
     Route: 048
     Dates: start: 20050101
  3. RISPERDAL [Concomitant]
  4. SOMA [Concomitant]
  5. STADOL [Concomitant]
     Indication: MIGRAINE
  6. WELLBUTRIN [Concomitant]
  7. XANAX [Concomitant]
  8. TOPAMAX [Concomitant]
  9. PROZAC [Concomitant]
  10. BUSPAR [Concomitant]

REACTIONS (5)
  - LOSS OF CONSCIOUSNESS [None]
  - INCORRECT DOSE ADMINISTERED [None]
  - ADVERSE EVENT [None]
  - FALL [None]
  - JOINT INJURY [None]
